FAERS Safety Report 14213226 (Version 1)
Quarter: 2017Q4

REPORT INFORMATION
  Report Type: Spontaneous
  Country: US (occurrence: US)
  Receive Date: 20171122
  Receipt Date: 20171122
  Transmission Date: 20180321
  Serious: No
  Sender: FDA-Public Use
  Company Number: None

PATIENT
  Age: 93 Year
  Sex: Female
  Weight: 58.5 kg

DRUGS (17)
  1. PROLIA [Concomitant]
     Active Substance: DENOSUMAB
  2. WARFARIN [Concomitant]
     Active Substance: WARFARIN
  3. ESBRIET [Suspect]
     Active Substance: PIRFENIDONE
     Indication: PULMONARY FIBROSIS
     Dosage: ?          QUANTITY:1 TABLET(S);?
     Route: 048
     Dates: start: 20171106, end: 20171118
  4. DIGOXIN. [Concomitant]
     Active Substance: DIGOXIN
  5. RANITIDINE. [Concomitant]
     Active Substance: RANITIDINE
  6. CENTRUM [Concomitant]
     Active Substance: VITAMINS
  7. CALCIUM WITH VITAMIN D [Concomitant]
     Active Substance: CALCIUM\VITAMIN D
  8. ASA [Concomitant]
     Active Substance: ASPIRIN
  9. LOSARTAN. [Concomitant]
     Active Substance: LOSARTAN
  10. PRAVASTATIN. [Concomitant]
     Active Substance: PRAVASTATIN
  11. FLECANIDE [Concomitant]
     Active Substance: FLECAINIDE
  12. BIOTIN [Concomitant]
     Active Substance: BIOTIN
  13. AYREL [Concomitant]
  14. PRESERVISION AREDS [Concomitant]
     Active Substance: MINERALS\VITAMINS
  15. OMEPRAZOLE. [Concomitant]
     Active Substance: OMEPRAZOLE
  16. TRIAMCINOLONE CREAM [Concomitant]
     Active Substance: TRIAMCINOLONE
  17. AMLODIPINE [Concomitant]
     Active Substance: AMLODIPINE BESYLATE

REACTIONS (3)
  - Fatigue [None]
  - Arthralgia [None]
  - Tremor [None]

NARRATIVE: CASE EVENT DATE: 20171106
